FAERS Safety Report 9527447 (Version 2)
Quarter: 2013Q3

REPORT INFORMATION
  Report Type: Spontaneous
  Country: GB (occurrence: GB)
  Receive Date: 20130917
  Receipt Date: 20130917
  Transmission Date: 20140515
  Serious: Yes (Hospitalization)
  Sender: FDA-Public Use
  Company Number: GB-AMGEN-GBRSP2013062138

PATIENT
  Age: 70 Year
  Sex: Male

DRUGS (8)
  1. ARANESP [Suspect]
     Indication: PRODUCT USED FOR UNKNOWN INDICATION
     Dosage: 40 MUG, Q2WK
     Route: 065
     Dates: start: 20130819
  2. ASPIRIN [Concomitant]
  3. AMLODIPINE [Concomitant]
  4. BETAHISTINE [Concomitant]
  5. SODIUM BICARBONATE [Concomitant]
  6. BISOPROLOL [Concomitant]
  7. FUROSEMIDE [Concomitant]
  8. ALFACALCIDOL [Concomitant]

REACTIONS (4)
  - Renal impairment [Unknown]
  - Dyspnoea [Unknown]
  - Fluid overload [Unknown]
  - Rash generalised [Not Recovered/Not Resolved]
